FAERS Safety Report 20595750 (Version 1)
Quarter: 2022Q1

REPORT INFORMATION
  Report Type: Report from Study
  Country: US (occurrence: US)
  Receive Date: 20220315
  Receipt Date: 20220315
  Transmission Date: 20220424
  Serious: Yes (Other)
  Sender: FDA-Public Use
  Company Number: US-MYLANLABS-2022M1019590

PATIENT
  Age: 69 Year
  Sex: Female

DRUGS (1)
  1. PACLITAXEL [Suspect]
     Active Substance: PACLITAXEL
     Indication: Breast cancer
     Dosage: 175 MILLIGRAM/SQ. METER, Q3W,CYCLICAL
     Route: 065

REACTIONS (2)
  - Cystoid macular oedema [Recovering/Resolving]
  - Neuropathy peripheral [Unknown]
